FAERS Safety Report 8541226 (Version 2)
Quarter: 2013Q2

REPORT INFORMATION
  Report Type: Spontaneous
  Country: US (occurrence: US)
  Receive Date: 20120502
  Receipt Date: 20130403
  Transmission Date: 20140414
  Serious: Yes (Hospitalization, Other)
  Sender: FDA-Public Use
  Company Number: US-BAYER-2012-042230

PATIENT
  Age: 20 Year
  Sex: Female
  Weight: 72.56 kg

DRUGS (7)
  1. YAZ [Suspect]
     Dosage: UNK
     Dates: start: 20110819, end: 20110929
  2. GIANVI [Suspect]
     Dosage: UNK
     Dates: start: 20110822, end: 201109
  3. RELAFEN [Concomitant]
     Indication: MUSCULOSKELETAL CHEST PAIN
     Dosage: UNK
     Dates: start: 20110926
  4. FLEXERIL [Concomitant]
     Indication: MUSCULOSKELETAL CHEST PAIN
  5. ZOFRAN [Concomitant]
     Indication: NAUSEA
  6. TORADOL [Concomitant]
     Indication: MUSCULOSKELETAL CHEST PAIN
  7. MORPHINE [Concomitant]
     Indication: MUSCULOSKELETAL CHEST PAIN

REACTIONS (2)
  - Pulmonary embolism [None]
  - Pulmonary infarction [None]
